FAERS Safety Report 8429060-8 (Version None)
Quarter: 2012Q2

REPORT INFORMATION
  Report Type: 
  Country: None (occurrence: None)
  Receive Date: 20120612
  Receipt Date: 20120601
  Transmission Date: 20120825
  Serious: Yes (Death, Other)
  Sender: FDA-Public Use
  Company Number: GB-JNJFOC-20120601429

PATIENT
  Age: 16 Year
  Sex: Male

DRUGS (4)
  1. ISOTRETINOIN [Suspect]
     Indication: ACNE
     Route: 048
     Dates: start: 20100501
  2. CHLORPHENAMINE [Suspect]
     Indication: PRODUCT USED FOR UNKNOWN INDICATION
     Route: 065
  3. ACETAMINOPHEN [Suspect]
     Route: 065
  4. ACETAMINOPHEN [Suspect]
     Indication: PRODUCT USED FOR UNKNOWN INDICATION
     Route: 065

REACTIONS (14)
  - SUICIDE ATTEMPT [None]
  - LIP DRY [None]
  - ERYTHEMA [None]
  - SCAR [None]
  - OVERDOSE [None]
  - SUDDEN DEATH [None]
  - GASTRIC INFECTION [None]
  - LOCALISED INFECTION [None]
  - SUICIDAL IDEATION [None]
  - PAIN IN EXTREMITY [None]
  - PERSONALITY CHANGE [None]
  - DRY SKIN [None]
  - OROPHARYNGEAL PAIN [None]
  - INGROWING NAIL [None]
